FAERS Safety Report 12578173 (Version 2)
Quarter: 2016Q4

REPORT INFORMATION
  Report Type: Spontaneous
  Country: US (occurrence: US)
  Receive Date: 20160721
  Receipt Date: 20161012
  Transmission Date: 20170207
  Serious: No
  Sender: FDA-Public Use
  Company Number: US-TEVA-672331USA

PATIENT
  Age: 38 Year
  Sex: Female

DRUGS (1)
  1. ZECUITY [Suspect]
     Active Substance: SUMATRIPTAN SUCCINATE
     Route: 062

REACTIONS (5)
  - Application site erythema [Recovered/Resolved]
  - Application site erosion [Unknown]
  - Application site irritation [Recovered/Resolved]
  - Hyperaesthesia [Recovered/Resolved]
  - Product physical issue [Unknown]

NARRATIVE: CASE EVENT DATE: 20160301
